FAERS Safety Report 9830758 (Version 1)
Quarter: 2014Q1

REPORT INFORMATION
  Report Type: Spontaneous
  Country: BR (occurrence: BR)
  Receive Date: 20140120
  Receipt Date: 20140120
  Transmission Date: 20141002
  Serious: Yes (Disabling)
  Sender: FDA-Public Use
  Company Number: BR-009507513-1401BRA005589

PATIENT
  Sex: Male

DRUGS (10)
  1. AMITRIPTYLINE HYDROCHLORIDE [Suspect]
     Indication: PANIC DISORDER
     Dosage: UNK, UNKNOWN
     Route: 048
  2. LORAX (LORAZEPAM) [Concomitant]
     Indication: PANIC DISORDER
     Dosage: UNK, UNKNOWN
  3. RIVOTRIL [Concomitant]
     Indication: PANIC DISORDER
     Dosage: 2 MG, BID
  4. TRANXILENE [Concomitant]
     Indication: PANIC DISORDER
     Dosage: UNK, UNKNOWN
  5. ESCITALOPRAM [Concomitant]
     Indication: PANIC DISORDER
     Dosage: UNK, UNKNOWN
  6. FLUOXETINE [Concomitant]
     Indication: PANIC DISORDER
     Dosage: UNK, UNKNOWN
  7. VENLAFAXINE HYDROCHLORIDE [Concomitant]
     Indication: PANIC DISORDER
     Dosage: UNK, UNKNOWN
  8. ANAFRANIL [Concomitant]
     Indication: PANIC DISORDER
     Dosage: UNK, UNKNOWN
  9. TOFRANIL [Concomitant]
     Indication: PANIC DISORDER
     Dosage: UNK, UNKNOWN
  10. RISPERIDONE [Concomitant]
     Indication: PANIC DISORDER
     Dosage: UNK, UNKNOWN

REACTIONS (5)
  - Condition aggravated [Not Recovered/Not Resolved]
  - Drug dependence [Not Recovered/Not Resolved]
  - Visual impairment [Not Recovered/Not Resolved]
  - Asthenia [Not Recovered/Not Resolved]
  - Off label use [Unknown]
